FAERS Safety Report 8242801-8 (Version None)
Quarter: 2012Q1

REPORT INFORMATION
  Report Type: 
  Country: None (occurrence: None)
  Receive Date: 20120329
  Receipt Date: 20120321
  Transmission Date: 20120608
  Serious: Yes (Hospitalization)
  Sender: FDA-Public Use
  Company Number: US-BAYER-2011-114233

PATIENT
  Age: 23 Year
  Sex: Female
  Weight: 54.422 kg

DRUGS (4)
  1. LORTAB [Concomitant]
  2. PHENERGAN HCL [Concomitant]
  3. SEASONIQUE [Concomitant]
  4. YAZ [Suspect]
     Indication: CONTRACEPTION
     Dosage: UNK
     Dates: start: 20090331, end: 20100301

REACTIONS (6)
  - DEPRESSION [None]
  - CHOLELITHIASIS [None]
  - IRRITABILITY [None]
  - CHOLECYSTITIS CHRONIC [None]
  - ABDOMINAL PAIN UPPER [None]
  - LAZINESS [None]
